FAERS Safety Report 12995667 (Version 2)
Quarter: 2016Q4

REPORT INFORMATION
  Report Type: Spontaneous
  Country: JP (occurrence: JP)
  Receive Date: 20161202
  Receipt Date: 20161230
  Transmission Date: 20170207
  Serious: Yes (Death)
  Sender: FDA-Public Use
  Company Number: JP-DSJP-DSJ-2016-140192

PATIENT

DRUGS (2)
  1. HEPARIN [Concomitant]
     Active Substance: HEPARIN SODIUM
     Indication: THROMBOSIS
     Dosage: UNK
     Route: 041
     Dates: start: 20160916
  2. LIXIANA TABLETS 60MG [Suspect]
     Active Substance: EDOXABAN TOSILATE MONOHYDRATE
     Indication: ATRIAL FIBRILLATION
     Dosage: 60 MG, QD
     Route: 048
     Dates: start: 20160921

REACTIONS (2)
  - Cerebral infarction [Fatal]
  - Epistaxis [Unknown]

NARRATIVE: CASE EVENT DATE: 20160930
